FAERS Safety Report 23499774 (Version 1)
Quarter: 2024Q1

REPORT INFORMATION
  Report Type: Spontaneous
  Country: IT (occurrence: IT)
  Receive Date: 20240208
  Receipt Date: 20240208
  Transmission Date: 20240410
  Serious: Yes (Other)
  Sender: FDA-Public Use
  Company Number: None

PATIENT
  Age: 70 Year
  Sex: Female
  Weight: 70 kg

DRUGS (2)
  1. LUCENTIS [Suspect]
     Active Substance: RANIBIZUMAB
     Indication: Neovascular age-related macular degeneration
     Dosage: 1 DOSAGE FORM (INTRAVITREALE OCCHIO SINISTRO)
     Route: 050
     Dates: start: 20230907, end: 20230907
  2. LUCENTIS [Suspect]
     Active Substance: RANIBIZUMAB
     Dosage: 1 DOSAGE FORM (INTRAVITREALE OCCHIO DESTRO)
     Route: 050
     Dates: start: 20231130

REACTIONS (4)
  - Retinal thickening [Not Recovered/Not Resolved]
  - Macular thickening [Not Recovered/Not Resolved]
  - Condition aggravated [Not Recovered/Not Resolved]
  - Therapeutic product effect decreased [Not Recovered/Not Resolved]

NARRATIVE: CASE EVENT DATE: 20240122
